FAERS Safety Report 22746096 (Version 5)
Quarter: 2023Q4

REPORT INFORMATION
  Report Type: Report from Study
  Country: MX (occurrence: MX)
  Receive Date: 20230725
  Receipt Date: 20231128
  Transmission Date: 20240109
  Serious: Yes (Hospitalization, Other)
  Sender: FDA-Public Use
  Company Number: MX-002147023-NVSC2021MX159944

PATIENT
  Sex: Female
  Weight: 61 kg

DRUGS (7)
  1. TASIGNA [Suspect]
     Active Substance: NILOTINIB
     Indication: Chronic myeloid leukaemia
     Dosage: 600 MG
     Route: 048
     Dates: start: 201912
  2. TASIGNA [Suspect]
     Active Substance: NILOTINIB
     Dosage: 800 MG
     Route: 048
     Dates: start: 202105
  3. TASIGNA [Suspect]
     Active Substance: NILOTINIB
     Dosage: 800 MG, QD (FOUR MONTHS AGO)
     Route: 065
  4. TASIGNA [Suspect]
     Active Substance: NILOTINIB
     Dosage: 800 MG, QD
     Route: 048
  5. TASIGNA [Suspect]
     Active Substance: NILOTINIB
     Dosage: UNK
     Route: 048
  6. OMEPRAZOLE [Concomitant]
     Active Substance: OMEPRAZOLE
     Indication: Abdominal pain upper
     Dosage: 1 DF, QD
     Route: 048
     Dates: start: 20210830
  7. TAMOXIFEN [Concomitant]
     Active Substance: TAMOXIFEN
     Indication: Product used for unknown indication
     Dosage: UNK
     Route: 065

REACTIONS (75)
  - Anaemia [Unknown]
  - Arrhythmia [Unknown]
  - Nephrolithiasis [Unknown]
  - Renal pain [Unknown]
  - Breast cancer [Unknown]
  - Second primary malignancy [Unknown]
  - Nephritis [Not Recovered/Not Resolved]
  - Vomiting [Recovered/Resolved]
  - Nausea [Recovered/Resolved]
  - Nausea [Not Recovered/Not Resolved]
  - Limb injury [Unknown]
  - Crying [Unknown]
  - Blood glucose abnormal [Unknown]
  - Urinary tract infection [Unknown]
  - Alopecia [Unknown]
  - Nervousness [Unknown]
  - Toothache [Unknown]
  - Fear [Unknown]
  - Stress [Unknown]
  - Somnolence [Recovering/Resolving]
  - Gastric dilatation [Not Recovered/Not Resolved]
  - Renal disorder [Unknown]
  - Vein disorder [Unknown]
  - Uterine disorder [Unknown]
  - Ill-defined disorder [Unknown]
  - Procedural pain [Unknown]
  - Terminal insomnia [Unknown]
  - Fibrosis [Unknown]
  - Breast discomfort [Unknown]
  - Musculoskeletal discomfort [Unknown]
  - Restlessness [Unknown]
  - Foot deformity [Unknown]
  - Discomfort [Unknown]
  - Ureterolithiasis [Unknown]
  - Pain [Unknown]
  - Fluid retention [Unknown]
  - Breast pain [Unknown]
  - Fatigue [Unknown]
  - Oropharyngeal pain [Recovering/Resolving]
  - Blood cholesterol increased [Unknown]
  - Tremor [Recovered/Resolved]
  - Nasopharyngitis [Recovered/Resolved]
  - Decreased appetite [Unknown]
  - Weight decreased [Unknown]
  - Weight increased [Unknown]
  - Abdominal discomfort [Unknown]
  - Anxiety [Unknown]
  - Influenza [Recovering/Resolving]
  - Peripheral swelling [Unknown]
  - Joint swelling [Unknown]
  - Arthralgia [Unknown]
  - Confusional state [Unknown]
  - Dry skin [Unknown]
  - Pruritus [Unknown]
  - Pain in extremity [Unknown]
  - Abdominal pain [Unknown]
  - Hyperkeratosis [Unknown]
  - Liver function test increased [Unknown]
  - Blood bilirubin increased [Unknown]
  - Back pain [Unknown]
  - Feeling of despair [Unknown]
  - Emotional distress [Unknown]
  - Depressed mood [Unknown]
  - Fall [Unknown]
  - Dizziness [Unknown]
  - Vomiting [Unknown]
  - Vertigo positional [Unknown]
  - Musculoskeletal chest pain [Unknown]
  - Bone pain [Unknown]
  - Contusion [Unknown]
  - Blood pressure abnormal [Unknown]
  - Malaise [Unknown]
  - Hypotension [Unknown]
  - Muscle contracture [Unknown]
  - Inappropriate schedule of product administration [Unknown]

NARRATIVE: CASE EVENT DATE: 20130101
